FAERS Safety Report 6423490-1 (Version None)
Quarter: 2009Q4

REPORT INFORMATION
  Report Type: 
  Country: None (occurrence: None)
  Receive Date: 20091028
  Receipt Date: 20091014
  Transmission Date: 20100525
  Serious: Yes (Other)
  Sender: FDA-Public Use
  Company Number: CIP09002694

PATIENT
  Sex: Female

DRUGS (1)
  1. ACTONEL [Suspect]
     Dosage: 17.5 MG ONCE WEEKLY, ORAL
     Route: 048

REACTIONS (7)
  - ABASIA [None]
  - ALOPECIA [None]
  - ASTHENIA [None]
  - IMPAIRED WORK ABILITY [None]
  - MALAISE [None]
  - MUSCULOSKELETAL CHEST PAIN [None]
  - PALLOR [None]
